FAERS Safety Report 6270760-6 (Version None)
Quarter: 2009Q3

REPORT INFORMATION
  Report Type: 
  Country: None (occurrence: None)
  Receive Date: 20090714
  Receipt Date: 20090707
  Transmission Date: 20100115
  Serious: Yes (Other)
  Sender: FDA-Public Use
  Company Number: GXKR2009GB07762

PATIENT
  Sex: Female

DRUGS (1)
  1. ALENDRONIC ACID (NGX) (ALENDRONIC ACID) UNKNOWN [Suspect]
     Indication: OSTEOPOROSIS

REACTIONS (1)
  - ATRIAL FIBRILLATION [None]
